FAERS Safety Report 16824901 (Version 1)
Quarter: 2019Q3

REPORT INFORMATION
  Report Type: Spontaneous
  Country: US (occurrence: US)
  Receive Date: 20190918
  Receipt Date: 20190918
  Transmission Date: 20191005
  Serious: Yes (Death, Hospitalization)
  Sender: FDA-Public Use
  Company Number: US-SUN PHARMACEUTICAL INDUSTRIES LTD-2019R1-220474

PATIENT
  Age: 74 Year
  Sex: Male

DRUGS (5)
  1. LEVETIRACETAM. [Concomitant]
     Active Substance: LEVETIRACETAM
     Indication: CENTRAL NERVOUS SYSTEM VASCULITIS
     Dosage: UNK
     Route: 065
  2. FLUCONAZOLE. [Suspect]
     Active Substance: FLUCONAZOLE
     Indication: MENINGITIS COCCIDIOIDES
     Dosage: UNK
     Route: 065
  3. DEXAMETHASONE. [Suspect]
     Active Substance: DEXAMETHASONE
     Indication: CENTRAL NERVOUS SYSTEM VASCULITIS
     Dosage: UNK
     Route: 065
  4. DEXAMETHASONE. [Suspect]
     Active Substance: DEXAMETHASONE
     Indication: COCCIDIOIDOMYCOSIS
  5. LEVETIRACETAM. [Concomitant]
     Active Substance: LEVETIRACETAM
     Indication: SEIZURE

REACTIONS (7)
  - Seizure [Not Recovered/Not Resolved]
  - Coccidioidomycosis [Fatal]
  - Central nervous system vasculitis [Fatal]
  - Drug ineffective [Fatal]
  - Lacunar infarction [Fatal]
  - Encephalopathy [Fatal]
  - Encephalitis [Fatal]
